FAERS Safety Report 9337238 (Version 1)
Quarter: 2013Q2

REPORT INFORMATION
  Report Type: Spontaneous
  Country: ES (occurrence: ES)
  Receive Date: 20130607
  Receipt Date: 20130607
  Transmission Date: 20140414
  Serious: Yes (Other)
  Sender: FDA-Public Use
  Company Number: ES-PFIZER INC-2013010985

PATIENT
  Age: 73 Year
  Sex: Male

DRUGS (5)
  1. AMOXICILLIN [Suspect]
     Indication: RESPIRATORY TRACT INFECTION
     Dosage: UNK
     Route: 065
  2. AMOXICILLIN [Suspect]
     Dosage: 187.5 MG, UNK
     Route: 048
  3. IBUPROFEN [Suspect]
     Indication: RESPIRATORY TRACT INFECTION
     Dosage: UNK
  4. CIPROFLOXACIN HCL [Suspect]
     Indication: PRODUCT USED FOR UNKNOWN INDICATION
     Dosage: 187.5 MG, UNK
     Route: 048
  5. MOXIFLOXACIN [Suspect]
     Indication: PRODUCT USED FOR UNKNOWN INDICATION
     Dosage: 400 MG, UNK
     Route: 048

REACTIONS (1)
  - Drug eruption [Recovered/Resolved]
